FAERS Safety Report 6162063-5 (Version None)
Quarter: 2009Q2

REPORT INFORMATION
  Report Type: 
  Country: None (occurrence: None)
  Receive Date: 20090421
  Receipt Date: 20090409
  Transmission Date: 20091009
  Serious: Yes (Hospitalization)
  Sender: FDA-Public Use
  Company Number: JP-GENENTECH-281050

PATIENT
  Sex: Male

DRUGS (7)
  1. AVASTIN [Suspect]
     Indication: COLON CANCER METASTATIC
     Dosage: 5 MG/KG, Q2W
     Route: 041
     Dates: start: 20080226, end: 20090317
  2. ELPLAT [Suspect]
     Indication: COLON CANCER METASTATIC
     Dosage: 140 MG, 3/WEEK
     Route: 041
     Dates: start: 20080226, end: 20090317
  3. FLUOROURACIL [Suspect]
     Indication: COLON CANCER METASTATIC
     Dosage: 600 MG, 1/WEEK
     Route: 042
     Dates: start: 20080226, end: 20090224
  4. CALCIUM LEVOFOLINATE [Suspect]
     Indication: COLON CANCER METASTATIC
     Dosage: 325 MG, Q3W
     Route: 041
     Dates: start: 20080226, end: 20090317
  5. TS-1 [Concomitant]
     Indication: DRUG USE FOR UNKNOWN INDICATION
     Dosage: UNK
     Dates: start: 20080612, end: 20090113
  6. SEROTONE [Concomitant]
     Indication: DRUG USE FOR UNKNOWN INDICATION
     Dosage: 1 AMP, UNK
     Route: 041
     Dates: start: 20090317, end: 20090317
  7. DECADRON [Concomitant]
     Indication: DRUG USE FOR UNKNOWN INDICATION
     Dosage: 8 MG, UNK
     Route: 041
     Dates: start: 20090317, end: 20090317

REACTIONS (4)
  - DYSPNOEA [None]
  - NAUSEA [None]
  - PYREXIA [None]
  - RASH [None]
